FAERS Safety Report 6288256-4 (Version None)
Quarter: 2009Q3

REPORT INFORMATION
  Report Type: 
  Country: None (occurrence: None)
  Receive Date: 20090723
  Receipt Date: 20090417
  Transmission Date: 20100115
  Serious: No
  Sender: FDA-Public Use
  Company Number: PYLE-2009-009

PATIENT
  Sex: Male

DRUGS (2)
  1. PYLERA (BISKALCITRATE, METRONIDAZOLE,TETRACYCLINE HC1) [Suspect]
     Dosage: 3 CAPS, QID, PO
     Route: 048
  2. OMEPRAZOLE [Concomitant]

REACTIONS (3)
  - ABDOMINAL PAIN UPPER [None]
  - DIARRHOEA [None]
  - WEIGHT DECREASED [None]
